FAERS Safety Report 13906482 (Version 1)
Quarter: 2017Q3

REPORT INFORMATION
  Report Type: Spontaneous
  Country: US (occurrence: US)
  Receive Date: 20170825
  Receipt Date: 20170825
  Transmission Date: 20171127
  Serious: No
  Sender: FDA-Public Use
  Company Number: US-SUNOVION-2017SUN003618

PATIENT
  Sex: Male

DRUGS (4)
  1. FINAP [Concomitant]
  2. ZYPREXA [Concomitant]
     Active Substance: OLANZAPINE
  3. LATUDA [Suspect]
     Active Substance: LURASIDONE HYDROCHLORIDE
     Route: 048
  4. RISPERDAL [Concomitant]
     Active Substance: RISPERIDONE
     Dosage: UNK

REACTIONS (4)
  - Depression [Not Recovered/Not Resolved]
  - Paranoia [Not Recovered/Not Resolved]
  - Hallucination, auditory [Not Recovered/Not Resolved]
  - Drug dose omission [Unknown]
